FAERS Safety Report 14640064 (Version 1)
Quarter: 2018Q1

REPORT INFORMATION
  Report Type: Spontaneous
  Country: US (occurrence: US)
  Receive Date: 20180315
  Receipt Date: 20180315
  Transmission Date: 20180509
  Serious: No
  Sender: FDA-Public Use
  Company Number: US-MYLANLABS-2017M1076625

PATIENT
  Sex: Female

DRUGS (1)
  1. AZELASTINE/FLUTICASONE [Suspect]
     Active Substance: AZELASTINE HYDROCHLORIDE\FLUTICASONE PROPIONATE
     Indication: SEASONAL ALLERGY
     Dosage: UNK UNK, BID (2TIMES DAILY ON AS NEEDED BASIS)
     Route: 045

REACTIONS (3)
  - Expired product administered [Unknown]
  - No adverse event [Unknown]
  - Product quality issue [Unknown]

NARRATIVE: CASE EVENT DATE: 2017
